FAERS Safety Report 9272891 (Version 4)
Quarter: 2013Q4

REPORT INFORMATION
  Report Type: Spontaneous
  Country: BR (occurrence: BR)
  Receive Date: 20130506
  Receipt Date: 20131226
  Transmission Date: 20140711
  Serious: Yes (Other)
  Sender: FDA-Public Use
  Company Number: PHHY2013BR041647

PATIENT
  Age: 62 Year
  Sex: Female

DRUGS (1)
  1. FORASEQ [Suspect]
     Indication: ASTHMA
     Dosage: 2 DF, 2 CAPSULES OF EACH TREATMENT A DAY
     Route: 055

REACTIONS (5)
  - Infarction [Recovering/Resolving]
  - Fatigue [Not Recovered/Not Resolved]
  - Tachycardia [Not Recovered/Not Resolved]
  - Device malfunction [Unknown]
  - Incorrect route of drug administration [Unknown]
